FAERS Safety Report 6129732-4 (Version None)
Quarter: 2009Q1

REPORT INFORMATION
  Report Type: 
  Country: None (occurrence: None)
  Receive Date: 20090324
  Receipt Date: 20090319
  Transmission Date: 20090719
  Serious: Yes (Hospitalization, Other)
  Sender: FDA-Public Use
  Company Number: A0774155A

PATIENT
  Age: 4 Year
  Sex: Female

DRUGS (2)
  1. VENTOLIN [Suspect]
     Indication: COUGH
     Dosage: 2ML THREE TIMES PER DAY
     Route: 048
     Dates: start: 20090304
  2. BIAXIN [Concomitant]
     Indication: COUGH
     Dosage: 5ML TWICE PER DAY
     Route: 065

REACTIONS (1)
  - CONVULSION [None]
